FAERS Safety Report 15858329 (Version 1)
Quarter: 2019Q1

REPORT INFORMATION
  Report Type: Spontaneous
  Country: US (occurrence: US)
  Receive Date: 20190123
  Receipt Date: 20190123
  Transmission Date: 20190417
  Serious: No
  Sender: FDA-Public Use
  Company Number: US-PFIZER INC-2019028362

PATIENT
  Age: 11 Year
  Sex: Male

DRUGS (1)
  1. GENOTROPIN [Suspect]
     Active Substance: SOMATROPIN
     Dosage: 1.4 MG, (6 DAYS A WEEK)
     Dates: start: 20180618

REACTIONS (12)
  - Abdominal pain upper [Unknown]
  - Headache [Unknown]
  - Anxiety [Unknown]
  - Blood cholesterol increased [Unknown]
  - Asthenia [Unknown]
  - Blood creatinine decreased [Unknown]
  - Muscle spasms [Unknown]
  - Enuresis [Unknown]
  - Blood urea increased [Unknown]
  - Fatigue [Unknown]
  - Sleep disorder [Unknown]
  - Product dose omission [Unknown]
